FAERS Safety Report 13620174 (Version 3)
Quarter: 2017Q4

REPORT INFORMATION
  Report Type: Report from Study
  Country: US (occurrence: US)
  Receive Date: 20170607
  Receipt Date: 20171219
  Transmission Date: 20180320
  Serious: Yes (Hospitalization)
  Sender: FDA-Public Use
  Company Number: US-BAYER-2017-076485

PATIENT
  Age: 51 Year
  Sex: Female

DRUGS (2)
  1. ADEMPAS [Suspect]
     Active Substance: RIOCIGUAT
     Indication: PULMONARY ARTERIAL HYPERTENSION
     Dosage: UNK
     Dates: start: 20150630
  2. ADEMPAS [Suspect]
     Active Substance: RIOCIGUAT
     Indication: PULMONARY ARTERIAL HYPERTENSION
     Dosage: 2 MG, TID
     Route: 048

REACTIONS (8)
  - Transfusion [None]
  - Clostridium difficile infection [None]
  - Dyspnoea [None]
  - Pyrexia [None]
  - Cystitis [None]
  - Dyspnoea [None]
  - Peripheral swelling [None]
  - Lung infection [None]

NARRATIVE: CASE EVENT DATE: 20170418
